FAERS Safety Report 23075558 (Version 1)
Quarter: 2023Q4

REPORT INFORMATION
  Report Type: Spontaneous
  Country: US (occurrence: US)
  Receive Date: 20231017
  Receipt Date: 20231017
  Transmission Date: 20240110
  Serious: Yes (Other)
  Sender: FDA-Public Use
  Company Number: US-SHR-US-2005-009355

PATIENT
  Age: 20 Month
  Sex: Male

DRUGS (10)
  1. CAMPATH [Suspect]
     Active Substance: ALEMTUZUMAB
     Indication: Immunosuppressant drug therapy
     Dosage: 30 MG
     Route: 042
  2. CAMPATH [Suspect]
     Active Substance: ALEMTUZUMAB
     Indication: Renal transplant
  3. CAMPATH [Suspect]
     Active Substance: ALEMTUZUMAB
     Indication: End stage renal disease
  4. CAMPATH [Suspect]
     Active Substance: ALEMTUZUMAB
     Indication: Haemolytic uraemic syndrome
  5. MYCOPHENOLATE MOFETIL [Suspect]
     Active Substance: MYCOPHENOLATE MOFETIL
     Dosage: 500 MG/M2, BID
     Route: 048
  6. CORTICOSTEROID NOS [Suspect]
     Active Substance: CORTICOSTEROID NOS
     Indication: Premedication
     Dosage: UNK
  7. CORTICOSTEROID NOS [Suspect]
     Active Substance: CORTICOSTEROID NOS
     Dosage: INCREASED
  8. VALGANCICLOVIR [Concomitant]
     Active Substance: VALGANCICLOVIR
     Indication: Infection prophylaxis
  9. BACTRIM [Concomitant]
     Active Substance: SULFAMETHOXAZOLE\TRIMETHOPRIM
     Indication: Infection prophylaxis
  10. NYSTATIN [Concomitant]
     Active Substance: NYSTATIN
     Indication: Infection prophylaxis

REACTIONS (2)
  - Kidney transplant rejection [Recovered/Resolved]
  - Off label use [Unknown]
